FAERS Safety Report 10598456 (Version 1)
Quarter: 2014Q4

REPORT INFORMATION
  Report Type: Spontaneous
  Country: US (occurrence: None)
  Receive Date: 20141119
  Receipt Date: 20141119
  Transmission Date: 20150529
  Serious: No
  Sender: FDA-Public Use
  Company Number: 1000070422

PATIENT
  Age: 63 Year
  Sex: Male

DRUGS (9)
  1. TUDORZA PRESSAIR [Suspect]
     Active Substance: ACLIDINIUM BROMIDE
     Indication: CHRONIC OBSTRUCTIVE PULMONARY DISEASE
     Dosage: 800 MCG (400 MCG,2 IN 1 D), RESPIRATORY (INHALATION)
     Route: 055
     Dates: start: 2013, end: 2013
  2. DALIRESP [Suspect]
     Active Substance: ROFLUMILAST
     Indication: CHRONIC OBSTRUCTIVE PULMONARY DISEASE
     Route: 048
     Dates: start: 2013
  3. ASPIRIN (ACETYLSALICYLIC ACID) (ACETYLSALICYLIC ACID) [Concomitant]
     Active Substance: ASPIRIN
  4. WARFARIN (WARFARIN) (WARFARIN) [Concomitant]
     Active Substance: WARFARIN
  5. ATORVASTATIN (ATORVASTATIN) (ATORVASTATIN) [Concomitant]
     Active Substance: ATORVASTATIN
  6. ADVAIR HFA [Suspect]
     Active Substance: FLUTICASONE PROPIONATE\SALMETEROL XINAFOATE
     Indication: CHRONIC OBSTRUCTIVE PULMONARY DISEASE
     Dates: start: 201306
  7. PROAIR HFA (SALBUTAMOL SULFATE) (SALBUTAMOL SULFATE) [Concomitant]
  8. CARVEDILOL (CARVEDILOL) [Suspect]
     Active Substance: CARVEDILOL
     Indication: HYPERTENSION
     Dosage: 6.25 MG (3.125 MG,2 IN 1 D)
     Route: 048
     Dates: start: 2013
  9. METHOTREXATE (METHOTREXATE) (METHOTREXATE) [Concomitant]
     Active Substance: METHOTREXATE

REACTIONS (5)
  - Dizziness [None]
  - Saliva discolouration [None]
  - Dysgeusia [None]
  - Dry throat [None]
  - Oral discomfort [None]

NARRATIVE: CASE EVENT DATE: 2013
